FAERS Safety Report 6524092-9 (Version None)
Quarter: 2009Q4

REPORT INFORMATION
  Report Type: 
  Country: None (occurrence: None)
  Receive Date: 20091230
  Receipt Date: 20091230
  Transmission Date: 20100525
  Serious: No
  Sender: FDA-Public Use
  Company Number: None

PATIENT
  Sex: Male
  Weight: 95.2554 kg

DRUGS (1)
  1. RISPERIDONE [Suspect]
     Indication: PARANOIA
     Dosage: 2 MG 8 AM 8 PM 2 TIME DAY
     Dates: start: 20040101

REACTIONS (6)
  - HEART RATE INCREASED [None]
  - PAINFUL ERECTION [None]
  - POLLAKIURIA [None]
  - THIRST [None]
  - UNEVALUABLE EVENT [None]
  - VOMITING [None]
